FAERS Safety Report 24310202 (Version 5)
Quarter: 2024Q4

REPORT INFORMATION
  Report Type: Spontaneous
  Country: AU (occurrence: AU)
  Receive Date: 20240912
  Receipt Date: 20241127
  Transmission Date: 20250115
  Serious: Yes (Hospitalization)
  Sender: NOVARTIS
  Company Number: AU-002147023-NVSC2024AU179685

PATIENT
  Sex: Female

DRUGS (1)
  1. KESIMPTA [Suspect]
     Active Substance: OFATUMUMAB
     Indication: Product used for unknown indication
     Dosage: 20 MG, 28D
     Route: 058

REACTIONS (4)
  - Pneumonia [Unknown]
  - Immune system disorder [Unknown]
  - Feeling abnormal [Unknown]
  - Product dose omission issue [Unknown]
